FAERS Safety Report 4692792-1 (Version None)
Quarter: 2005Q2

REPORT INFORMATION
  Report Type: 
  Country: None (occurrence: None)
  Receive Date: 20050617
  Receipt Date: 20050504
  Transmission Date: 20051028
  Serious: Yes (Hospitalization)
  Sender: FDA-Public Use
  Company Number: US-MERCK-0505USA00665

PATIENT
  Age: 42 Year
  Sex: Male

DRUGS (1)
  1. VIOXX [Suspect]
     Indication: BACK PAIN
     Route: 048
     Dates: start: 20030401, end: 20040901

REACTIONS (4)
  - ADVERSE EVENT [None]
  - BACK DISORDER [None]
  - BLOOD CHOLESTEROL INCREASED [None]
  - LARYNGITIS [None]
